FAERS Safety Report 4888267-7 (Version None)
Quarter: 2006Q1

REPORT INFORMATION
  Report Type: 
  Country: None (occurrence: None)
  Receive Date: 20060119
  Receipt Date: 20051223
  Transmission Date: 20060701
  Serious: Yes (Hospitalization, Disabling)
  Sender: FDA-Public Use
  Company Number: 401244

PATIENT
  Age: 14 Year
  Sex: Male
  Weight: 89.8 kg

DRUGS (2)
  1. ACCUTANE [Suspect]
     Indication: ACNE
     Dosage: 40 MG 2 PER DAY ORAL
     Route: 048
     Dates: start: 19890216, end: 19950319
  2. ACETAMINOPHEN [Concomitant]

REACTIONS (27)
  - BACK PAIN [None]
  - BLOOD CHOLESTEROL INCREASED [None]
  - BLOOD PHOSPHORUS DECREASED [None]
  - BONE METABOLISM DISORDER [None]
  - CARDIOMEGALY [None]
  - CONJUNCTIVITIS ALLERGIC [None]
  - CYTOMEGALOVIRUS ENTERITIS [None]
  - DEHYDRATION [None]
  - DIALYSIS [None]
  - EPISTAXIS [None]
  - FRACTURE [None]
  - GLOMERULOSCLEROSIS [None]
  - HEADACHE [None]
  - HYPERLIPIDAEMIA [None]
  - HYPERTENSION [None]
  - INJURY [None]
  - MULTI-ORGAN DISORDER [None]
  - NIGHT BLINDNESS [None]
  - OBESITY [None]
  - RENAL ATROPHY [None]
  - RENAL CYST [None]
  - RENAL DISORDER [None]
  - RENAL FAILURE [None]
  - RENAL FAILURE CHRONIC [None]
  - RENAL TRANSPLANT [None]
  - SEVER'S DISEASE [None]
  - SKIN PAPILLOMA [None]
